FAERS Safety Report 10077449 (Version 2)
Quarter: 2014Q2

REPORT INFORMATION
  Report Type: Spontaneous
  Country: US (occurrence: US)
  Receive Date: 20140414
  Receipt Date: 20140414
  Transmission Date: 20141212
  Serious: No
  Sender: FDA-Public Use
  Company Number: US-BANPHARM-20131534

PATIENT
  Age: 68 Year
  Sex: Female
  Weight: 124.74 kg

DRUGS (6)
  1. ALEVE LIQUID GELS 220 MG [Suspect]
     Indication: PAIN
     Dosage: 1 DF, QID,
     Route: 048
     Dates: start: 201307
  2. TYLENOL [Concomitant]
  3. WELCHOL 625 MG [Concomitant]
     Dosage: 6 DF, QD,
  4. VERAPAMIL [Concomitant]
  5. THYROID MEDICATION 30 MG [Concomitant]
  6. NEXIUM 40 MG [Concomitant]

REACTIONS (2)
  - Drug ineffective [Not Recovered/Not Resolved]
  - Incorrect dose administered [Unknown]
